FAERS Safety Report 8345741-9 (Version None)
Quarter: 2012Q2

REPORT INFORMATION
  Report Type: 
  Country: None (occurrence: None)
  Receive Date: 20120508
  Receipt Date: 20120425
  Transmission Date: 20120825
  Serious: Yes (Hospitalization, Other)
  Sender: FDA-Public Use
  Company Number: CO-ELI_LILLY_AND_COMPANY-CO201204009636

PATIENT
  Age: 72 Year
  Sex: Female

DRUGS (6)
  1. LEFLUNOMIDE [Concomitant]
  2. HYDROCHLOROTHIAZIDE [Concomitant]
  3. VERAPAMIL [Concomitant]
  4. CALCIUM +VIT D [Concomitant]
     Indication: SUPPLEMENTATION THERAPY
  5. METHOTREXATE [Concomitant]
  6. FORTEO [Suspect]
     Indication: OSTEOPOROSIS
     Dosage: 20 UG, QD
     Route: 058
     Dates: start: 20100901

REACTIONS (5)
  - ABDOMINAL PAIN [None]
  - HYPERTENSION [None]
  - INFLAMMATION [None]
  - DYSPNOEA [None]
  - SPINAL PAIN [None]
